FAERS Safety Report 6312525-2 (Version None)
Quarter: 2009Q3

REPORT INFORMATION
  Report Type: 
  Country: None (occurrence: None)
  Receive Date: 20090817
  Receipt Date: 20090805
  Transmission Date: 20100115
  Serious: Yes (Hospitalization)
  Sender: FDA-Public Use
  Company Number: DE-PFIZER INC-2009250335

PATIENT
  Age: 64 Year

DRUGS (11)
  1. REVATIO [Interacting]
     Indication: PULMONARY HYPERTENSION
     Dosage: 60 MG, 3X/DAY
     Route: 048
     Dates: start: 20080701
  2. FALITHROM [Suspect]
     Indication: HEART VALVE OPERATION
     Dosage: 9 MG, 1X/DAY, INTAKE ACCORDING QUICK'S VALUE
     Route: 048
     Dates: start: 19780101
  3. ACTRAPID NOVOLET [Concomitant]
     Indication: TYPE 2 DIABETES MELLITUS
     Dosage: 6 IU, 3X/DAY
     Route: 058
     Dates: start: 20000101
  4. CALCIUM ACETATE [Concomitant]
     Indication: RENAL FAILURE CHRONIC
     Dosage: 700 MG, 2X/DAY
     Route: 048
  5. DIGITOXIN [Concomitant]
     Indication: ATRIAL FIBRILLATION
     Dosage: 0.07 MG, 1X/DAY
     Route: 048
     Dates: start: 20020101
  6. DREISAVIT N [Concomitant]
     Indication: RENAL FAILURE CHRONIC
     Dosage: 1 DF, 1X/DAY
     Route: 048
     Dates: start: 20080401, end: 20080830
  7. LANTUS [Concomitant]
     Indication: TYPE 2 DIABETES MELLITUS
     Dosage: 14 IU, 2X/DAY
     Route: 058
     Dates: start: 20020101
  8. LISINOPRIL [Concomitant]
     Indication: CARDIAC FAILURE
     Dosage: 2.5 MG, 1X/DAY
     Route: 048
     Dates: start: 20020101
  9. OMEPRAZOL [Concomitant]
     Indication: PROPHYLAXIS AGAINST GASTROINTESTINAL ULCER
     Dosage: 40 MG, 1X/DAY
     Route: 048
     Dates: start: 20000101
  10. CLEMASTINE FUMARATE [Concomitant]
     Indication: HYPERSENSITIVITY
     Dosage: 1 MG, 1X/DAY
     Route: 048
  11. TAVOR [Concomitant]
     Dosage: 1 MG, 1X/DAY
     Route: 048
     Dates: end: 20080830

REACTIONS (2)
  - DRUG INTERACTION [None]
  - GINGIVAL BLEEDING [None]
